FAERS Safety Report 7397018-6 (Version None)
Quarter: 2011Q1

REPORT INFORMATION
  Report Type: 
  Country: None (occurrence: None)
  Receive Date: 20110328
  Receipt Date: 20110311
  Transmission Date: 20110831
  Serious: Yes (Death)
  Sender: FDA-Public Use
  Company Number: NATX201100004

PATIENT

DRUGS (2)
  1. PODOPHYLLIN (PODOPHYLLIN PELTAUM RESIN) 25% [Suspect]
     Dosage: APPLIED WEEKLY FOR UP TO 25 WEEKS, TOPICAL
     Route: 061
     Dates: start: 20030101, end: 20070701
  2. DENAVIR (PENCICLOVIR SODIUM) CREAM, 1% [Suspect]
     Indication: ORAL HAIRY LEUKOPLAKIA
     Dosage: APPLIED WEEKLY FOR UP TO 25 WEEKS, TOPICAL
     Route: 061
     Dates: start: 20030101, end: 20070701

REACTIONS (3)
  - DISEASE RECURRENCE [None]
  - ACQUIRED IMMUNODEFICIENCY SYNDROME [None]
  - ORAL HAIRY LEUKOPLAKIA [None]
